FAERS Safety Report 4373292-5 (Version None)
Quarter: 2004Q2

REPORT INFORMATION
  Report Type: 
  Country: None (occurrence: None)
  Receive Date: 20040603
  Receipt Date: 20040521
  Transmission Date: 20050107
  Serious: Yes (Death, Other)
  Sender: FDA-Public Use
  Company Number: USA-2003-0010765

PATIENT
  Age: 43 Year
  Sex: Male
  Weight: 86.2 kg

DRUGS (1)
  1. OXYCONTIN [Suspect]
     Indication: PAIN
     Dosage: 20 MG;  40 MG, SEE TEXT, INTRAVENOUS
     Dates: start: 20020208, end: 20030825

REACTIONS (8)
  - COMPLETED SUICIDE [None]
  - DRUG ABUSER [None]
  - GUN SHOT WOUND [None]
  - HEAD INJURY [None]
  - INSOMNIA [None]
  - INTENTIONAL MISUSE [None]
  - PAIN [None]
  - THEFT [None]
